FAERS Safety Report 5725729-4 (Version None)
Quarter: 2008Q2

REPORT INFORMATION
  Report Type: 
  Country: None (occurrence: None)
  Receive Date: 20080429
  Receipt Date: 20080414
  Transmission Date: 20081010
  Serious: Yes (Death, Hospitalization, Other)
  Sender: FDA-Public Use
  Company Number: 163-21880-08041132

PATIENT
  Sex: Male

DRUGS (7)
  1. REVLIMID [Suspect]
     Indication: CHRONIC LYMPHOCYTIC LEUKAEMIA
     Dosage: 10 MG, QD, ORAL
     Route: 048
     Dates: start: 20051208, end: 20080413
  2. ADVAIR DISKUS(SERETIDE MITE)(INHALANT) [Concomitant]
  3. AVODART [Concomitant]
  4. CLARITIN [Concomitant]
  5. LUMIGAN (BIMATOPROST)(EYE DROPS) [Concomitant]
  6. PEPCID COMPLETE (FAMOTIDINE)(TABLETS) [Concomitant]
  7. PRAVACHOL [Concomitant]

REACTIONS (2)
  - ESCHERICHIA INFECTION [None]
  - PSEUDOMONAL BACTERAEMIA [None]
